FAERS Safety Report 7983679-7 (Version None)
Quarter: 2011Q4

REPORT INFORMATION
  Report Type: 
  Country: None (occurrence: None)
  Receive Date: 20111215
  Receipt Date: 20111205
  Transmission Date: 20120403
  Serious: Yes (Other)
  Sender: FDA-Public Use
  Company Number: JP-ASTRAZENECA-2011SE72026

PATIENT
  Age: 72 Year
  Sex: Male

DRUGS (12)
  1. CRESTOR [Suspect]
     Indication: HYPERCHOLESTEROLAEMIA
     Route: 048
     Dates: start: 20111105, end: 20111112
  2. AMLODIPINE [Concomitant]
     Indication: HYPERTENSION
     Route: 048
     Dates: start: 20110804
  3. TEGRETOL [Concomitant]
     Indication: CENTRAL PAIN SYNDROME
     Dosage: 100-200 MG TWICE A DAY
     Route: 048
     Dates: start: 20110819, end: 20111121
  4. ROHYPNOL [Concomitant]
     Indication: INSOMNIA
     Dosage: 0.5 -1 G
     Route: 048
     Dates: start: 20110720
  5. UNKNOWNDRUG [Concomitant]
     Indication: POLLAKIURIA
     Route: 048
     Dates: start: 20110804
  6. CELESTAMINE TAB [Concomitant]
     Indication: DRUG ERUPTION
     Route: 048
     Dates: start: 20111114, end: 20111118
  7. OLMESARTAN MEDOXOMIL [Concomitant]
     Indication: HYPERTENSION
     Route: 048
     Dates: start: 20110601
  8. MAGMITT [Concomitant]
     Indication: CONSTIPATION
     Dates: start: 20110721
  9. SODIUM PICOSULFATE HYDRATE [Concomitant]
     Indication: CONSTIPATION
     Dosage: 5 TO 10 DROPS DAILY
     Route: 048
     Dates: start: 20110808
  10. FAMOTIDINE [Concomitant]
     Indication: GASTRITIS
     Route: 048
     Dates: start: 20110804
  11. SPIRIVA [Concomitant]
     Indication: ASTHMA
     Route: 055
     Dates: start: 20060101
  12. INTENURSE [Concomitant]
     Indication: MUSCULOSKELETAL PAIN
     Dosage: 1 TO 2
     Route: 062
     Dates: start: 20110829

REACTIONS (1)
  - DRUG ERUPTION [None]
